FAERS Safety Report 13024737 (Version 1)
Quarter: 2016Q4

REPORT INFORMATION
  Report Type: Spontaneous
  Country: US (occurrence: US)
  Receive Date: 20161213
  Receipt Date: 20161213
  Transmission Date: 20170207
  Serious: Yes (Other)
  Sender: FDA-Public Use
  Company Number: US-ROCHE-1830383

PATIENT
  Sex: Male

DRUGS (2)
  1. ACTIVASE [Suspect]
     Active Substance: ALTEPLASE
     Indication: PULMONARY EMBOLISM
  2. ACTIVASE [Suspect]
     Active Substance: ALTEPLASE
     Indication: ARTERIAL THROMBOSIS
     Dosage: ONE DOSE
     Route: 042
     Dates: start: 20160913, end: 20160913

REACTIONS (3)
  - No adverse event [Unknown]
  - Drug administration error [Unknown]
  - Drug ineffective [Unknown]
